FAERS Safety Report 25364545 (Version 2)
Quarter: 2025Q3

REPORT INFORMATION
  Report Type: Report from Study
  Country: JP (occurrence: JP)
  Receive Date: 20250527
  Receipt Date: 20250708
  Transmission Date: 20251021
  Serious: Yes (Death, Life-Threatening, Disabling)
  Sender: PFIZER
  Company Number: JP-PFIZER INC-PV202500062963

PATIENT
  Age: 76 Year
  Sex: Female
  Weight: 38.3 kg

DRUGS (10)
  1. ELRANATAMAB [Suspect]
     Active Substance: ELRANATAMAB
     Indication: Plasma cell myeloma refractory
     Dosage: 12 MG, WEEKLY
     Dates: start: 20241101, end: 20241108
  2. ELRANATAMAB [Suspect]
     Active Substance: ELRANATAMAB
     Dosage: 76 MG, WEEKLY
     Dates: start: 20241115, end: 20250205
  3. POLARAMINE [Concomitant]
     Active Substance: DEXCHLORPHENIRAMINE MALEATE
     Indication: Premedication
  4. BISOPROLOL [Concomitant]
     Active Substance: BISOPROLOL
     Indication: Arrhythmia
     Route: 048
     Dates: start: 20241104, end: 20250208
  5. ACETAMINOPHEN\TRAMADOL HYDROCHLORIDE [Concomitant]
     Active Substance: ACETAMINOPHEN\TRAMADOL HYDROCHLORIDE
     Indication: Analgesic therapy
     Route: 048
     Dates: start: 20241104, end: 20250208
  6. HYDROMORPHONE HYDROCHLORIDE [Concomitant]
     Active Substance: HYDROMORPHONE HYDROCHLORIDE
     Indication: Analgesic therapy
     Route: 048
     Dates: start: 20250207, end: 20250208
  7. HYDROMORPHONE HYDROCHLORIDE [Concomitant]
     Active Substance: HYDROMORPHONE HYDROCHLORIDE
     Indication: Analgesic therapy
     Route: 048
     Dates: start: 20250207, end: 20250207
  8. PRIMPERAN [Concomitant]
     Active Substance: METOCLOPRAMIDE HYDROCHLORIDE
     Dates: start: 20250207, end: 20250207
  9. SOLU-MEDROL [Concomitant]
     Active Substance: METHYLPREDNISOLONE SODIUM SUCCINATE
     Route: 042
     Dates: start: 20250207, end: 20250207
  10. DEXTROSE\POTASSIUM CHLORIDE\SODIUM CHLORIDE\SODIUM LACTATE [Concomitant]
     Active Substance: DEXTROSE MONOHYDRATE\POTASSIUM CHLORIDE\SODIUM CHLORIDE\SODIUM LACTATE
     Route: 042
     Dates: start: 20250207, end: 20250207

REACTIONS (1)
  - Capillary leak syndrome [Fatal]

NARRATIVE: CASE EVENT DATE: 20250207
